FAERS Safety Report 4391227-6 (Version None)
Quarter: 2004Q2

REPORT INFORMATION
  Report Type: 
  Country: None (occurrence: None)
  Receive Date: 20040621
  Receipt Date: 20031224
  Transmission Date: 20050107
  Serious: Yes (Death, Other)
  Sender: FDA-Public Use
  Company Number: USA-2003-0005725

PATIENT
  Age: 63 Year
  Sex: Female
  Weight: 59.9 kg

DRUGS (7)
  1. OXYCONTIN [Suspect]
  2. COCAINE (COCAINE) [Suspect]
  3. CITALOPRAM (CITALOPRAM) [Suspect]
  4. ACTIQ [Suspect]
  5. OXYMORPHONE HYDROCHLORIDE [Suspect]
  6. PHENOBARBITAL TAB [Suspect]
  7. CAFFEINE (CAFFEINE) [Suspect]

REACTIONS (2)
  - DRUG ABUSER [None]
  - MULTIPLE DRUG OVERDOSE ACCIDENTAL [None]
